FAERS Safety Report 5063936-7 (Version None)
Quarter: 2006Q3

REPORT INFORMATION
  Report Type: 
  Country: None (occurrence: None)
  Receive Date: 20060724
  Receipt Date: 20060710
  Transmission Date: 20061208
  Serious: Yes (Life-Threatening, Other)
  Sender: FDA-Public Use
  Company Number: 2006041781

PATIENT
  Age: 40 Year
  Sex: Male
  Weight: 108.8633 kg

DRUGS (10)
  1. LIPITOR [Suspect]
     Indication: DRUG USE FOR UNKNOWN INDICATION
  2. NEURONTIN [Suspect]
     Indication: RESTLESS LEGS SYNDROME
     Dates: start: 20050101, end: 20060322
  3. NORVASC [Suspect]
     Indication: HYPERTENSION
     Dosage: (1 IN 1 D)
     Dates: start: 20060201, end: 20060301
  4. ENALAPRIL MALEATE [Suspect]
     Indication: HYPERTENSION
     Dates: end: 20060201
  5. DRUG, UNSPECIFIED (DRUG, UNSPECIFIED) [Suspect]
     Indication: DRUG USE FOR UNKNOWN INDICATION
  6. LORATADINE [Concomitant]
  7. REQUIP [Concomitant]
  8. PROVIGIL [Concomitant]
  9. ASPIRIN [Concomitant]
  10. WELLBUTRIN [Concomitant]

REACTIONS (5)
  - DRUG HYPERSENSITIVITY [None]
  - OEDEMA PERIPHERAL [None]
  - PHARYNGEAL OEDEMA [None]
  - RESTLESS LEGS SYNDROME [None]
  - SOMNOLENCE [None]
